FAERS Safety Report 15480050 (Version 1)
Quarter: 2018Q4

REPORT INFORMATION
  Report Type: Spontaneous
  Country: CZ (occurrence: CZ)
  Receive Date: 20181009
  Receipt Date: 20181009
  Transmission Date: 20190205
  Serious: Yes (Other)
  Sender: FDA-Public Use
  Company Number: PHHY2018CZ118366

PATIENT
  Sex: Male

DRUGS (1)
  1. AZITHROMYCIN SANDOZ [Suspect]
     Active Substance: AZITHROMYCIN ANHYDROUS
     Indication: EYE DISORDER
     Dosage: UNK(3 TABLETS, WEEK PAUSE, THEN 3 TABLETS AGAIN)
     Route: 065
     Dates: end: 20181001

REACTIONS (2)
  - Back pain [Not Recovered/Not Resolved]
  - Oliguria [Not Recovered/Not Resolved]
